FAERS Safety Report 9716580 (Version 2)
Quarter: 2014Q1

REPORT INFORMATION
  Report Type: Spontaneous
  Country: CH (occurrence: CH)
  Receive Date: 20131127
  Receipt Date: 20140115
  Transmission Date: 20141002
  Serious: Yes (Other)
  Sender: FDA-Public Use
  Company Number: CH-AMGEN-CHESP2013082625

PATIENT
  Age: 68 Year
  Sex: Female
  Weight: 60 kg

DRUGS (3)
  1. PROLIA [Suspect]
     Indication: OSTEOPOROSIS POSTMENOPAUSAL
     Dosage: 60 MG, Q6MO
     Route: 058
     Dates: start: 20120704, end: 20120704
  2. CALCINGA [Concomitant]
     Indication: OSTEOPOROSIS
     Dosage: 500/400, QD
     Route: 048
     Dates: start: 2007
  3. VI DE3 [Concomitant]
     Indication: OSTEOPOROSIS
     Dosage: 8 E, QD
     Route: 048
     Dates: start: 2007

REACTIONS (8)
  - Femur fracture [Recovered/Resolved]
  - Rash vesicular [Recovered/Resolved]
  - Osteoarthritis [Unknown]
  - Device breakage [Unknown]
  - Osteosclerosis [Unknown]
  - Musculoskeletal disorder [Unknown]
  - Gait disturbance [Unknown]
  - Pain in extremity [Unknown]
